FAERS Safety Report 13260857 (Version 1)
Quarter: 2017Q1

REPORT INFORMATION
  Report Type: Spontaneous
  Country: AU (occurrence: AU)
  Receive Date: 20170222
  Receipt Date: 20170222
  Transmission Date: 20170428
  Serious: Yes (Other)
  Sender: FDA-Public Use
  Company Number: AU-DEPOMED, INC.-AU-2017DEP000357

PATIENT
  Age: 18 Year
  Sex: Female

DRUGS (2)
  1. FENTANYL. [Suspect]
     Active Substance: FENTANYL
     Indication: PRODUCT USED FOR UNKNOWN INDICATION
     Dosage: UNK
     Route: 042
  2. TRAMADOL. [Suspect]
     Active Substance: TRAMADOL
     Indication: ANALGESIC THERAPY
     Dosage: UNK, QID FOR 8 DAYS
     Route: 048

REACTIONS (5)
  - Hypoglycaemia [Recovered/Resolved]
  - Blood corticotrophin decreased [Recovered/Resolved]
  - Adrenal insufficiency [Recovered/Resolved]
  - Blood cortisol decreased [Recovered/Resolved]
  - ACTH stimulation test abnormal [Recovered/Resolved]
